FAERS Safety Report 22274596 (Version 3)
Quarter: 2023Q2

REPORT INFORMATION
  Report Type: Spontaneous
  Country: SO (occurrence: SO)
  Receive Date: 20230502
  Receipt Date: 20230518
  Transmission Date: 20230721
  Serious: Yes (Hospitalization, Other)
  Sender: FDA-Public Use
  Company Number: SO-MACLEODS PHARMACEUTICALS US LTD-MAC2023041039

PATIENT

DRUGS (2)
  1. TRAMADOL [Suspect]
     Active Substance: TRAMADOL
     Indication: Erectile dysfunction
     Dosage: 200 MILLIGRAM, QD
     Route: 065
  2. TRAMADOL [Suspect]
     Active Substance: TRAMADOL
     Dosage: 300 MILLIGRAM, QD
     Route: 065

REACTIONS (6)
  - Haemorrhagic stroke [Recovering/Resolving]
  - Vasogenic cerebral oedema [Recovering/Resolving]
  - Cerebral haemorrhage [Recovering/Resolving]
  - Basal ganglia haematoma [Recovering/Resolving]
  - Agitation [Recovering/Resolving]
  - Drug dependence [Unknown]
